FAERS Safety Report 9032418 (Version 2)
Quarter: 2013Q1

REPORT INFORMATION
  Report Type: Report from Study
  Country: BR (occurrence: BR)
  Receive Date: 20130125
  Receipt Date: 20130219
  Transmission Date: 20140127
  Serious: Yes (Hospitalization)
  Sender: FDA-Public Use
  Company Number: BR-ROCHE-1172839

PATIENT
  Sex: Female
  Weight: 80 kg

DRUGS (10)
  1. MABTHERA [Suspect]
     Indication: SYSTEMIC LUPUS ERYTHEMATOSUS
     Route: 065
     Dates: start: 20121015, end: 20121030
  2. LORATADINE [Concomitant]
     Indication: PREMEDICATION
  3. REUQUINOL [Concomitant]
  4. DIOVAN [Concomitant]
  5. ATENSINA [Concomitant]
  6. CLOPIDOGREL [Concomitant]
  7. LEXAPRO [Concomitant]
  8. PANTOPRAZOLE [Concomitant]
  9. CYCLOPHOSPHAMIDE [Concomitant]
     Route: 065
     Dates: start: 201212
  10. HYDROXYCHLOROQUINE [Concomitant]

REACTIONS (4)
  - Hypertensive crisis [Recovered/Resolved]
  - Renal disorder [Unknown]
  - Drug ineffective [Unknown]
  - Pain [Recovering/Resolving]
